FAERS Safety Report 11512334 (Version 1)
Quarter: 2015Q3

REPORT INFORMATION
  Report Type: Spontaneous
  Country: CA (occurrence: CA)
  Receive Date: 20150916
  Receipt Date: 20150916
  Transmission Date: 20151125
  Serious: Yes (Hospitalization)
  Sender: FDA-Public Use
  Company Number: CA-ASTRAZENECA-2015SE87354

PATIENT
  Sex: Male

DRUGS (5)
  1. SEROQUEL XR [Suspect]
     Active Substance: QUETIAPINE FUMARATE
     Indication: POST-TRAUMATIC STRESS DISORDER
     Route: 048
  2. IMOVANE [Concomitant]
     Active Substance: ZOPICLONE
  3. ATIVAN [Concomitant]
     Active Substance: LORAZEPAM
  4. EFFEXA [Concomitant]
  5. SEROQUEL XR [Suspect]
     Active Substance: QUETIAPINE FUMARATE
     Indication: DEPRESSION
     Route: 048

REACTIONS (3)
  - Fall [Unknown]
  - Jaw fracture [Unknown]
  - Vertigo [Unknown]
